APPROVED DRUG PRODUCT: ZOCOR
Active Ingredient: SIMVASTATIN
Strength: 80MG **Federal Register determination that product was not discontinued or withdrawn for safety or effectiveness reasons**
Dosage Form/Route: TABLET;ORAL
Application: N019766 | Product #005
Applicant: ORGANON LLC A SUB OF ORGANON AND CO
Approved: Jul 10, 1998 | RLD: Yes | RS: No | Type: DISCN